FAERS Safety Report 12261476 (Version 1)
Quarter: 2016Q2

REPORT INFORMATION
  Report Type: Spontaneous
  Country: ES (occurrence: ES)
  Receive Date: 20160412
  Receipt Date: 20160412
  Transmission Date: 20160815
  Serious: Yes (Hospitalization, Other)
  Sender: FDA-Public Use
  Company Number: ES-APOTEX-2016AP007663

PATIENT
  Age: 24 Year
  Sex: Male

DRUGS (5)
  1. METHYLPREDNISOLONE. [Concomitant]
     Active Substance: METHYLPREDNISOLONE
     Indication: LUPUS NEPHRITIS
     Dosage: 3 DAILY INTRAVENOUS PULSES OF 500 MG
     Route: 042
  2. CYCLOPHOSPHAMIDE. [Concomitant]
     Active Substance: CYCLOPHOSPHAMIDE
     Indication: LUPUS NEPHRITIS
     Dosage: 500 MG, B.I.WK.
     Route: 042
  3. PREDNISONE. [Concomitant]
     Active Substance: PREDNISONE
     Indication: LUPUS NEPHRITIS
     Dosage: 30 MG/DAY
     Route: 048
  4. ENALAPRIL APOTEX COMPRIMIDOS EFG [Suspect]
     Active Substance: ENALAPRIL
     Indication: LUPUS NEPHRITIS
     Dosage: 5 MG/DAY
     Route: 065
  5. HYDROXYCHLOROQUINE [Concomitant]
     Active Substance: HYDROXYCHLOROQUINE
     Indication: LUPUS NEPHRITIS
     Dosage: 200 MG/DAY
     Route: 065

REACTIONS (3)
  - Renal tubular acidosis [Recovered/Resolved]
  - Hypoaldosteronism [Recovered/Resolved]
  - Unmasking of previously unidentified disease [Recovered/Resolved]
